FAERS Safety Report 6268218-3 (Version None)
Quarter: 2009Q3

REPORT INFORMATION
  Report Type: 
  Country: None (occurrence: None)
  Receive Date: 20090715
  Receipt Date: 20090708
  Transmission Date: 20100115
  Serious: Yes (Other)
  Sender: FDA-Public Use
  Company Number: BR-JNJFOC-20090702846

PATIENT
  Age: 69 Year
  Sex: Female

DRUGS (1)
  1. TYLEX [Suspect]
     Indication: BONE PAIN
     Route: 065

REACTIONS (4)
  - EYE SWELLING [None]
  - HYPERSENSITIVITY [None]
  - SCAB [None]
  - SWELLING FACE [None]
